FAERS Safety Report 6389062-2 (Version None)
Quarter: 2009Q4

REPORT INFORMATION
  Report Type: 
  Country: None (occurrence: None)
  Receive Date: 20091006
  Receipt Date: 20071010
  Transmission Date: 20100525
  Serious: Yes (Hospitalization, Other)
  Sender: FDA-Public Use
  Company Number: US-ASTRAZENECA-2006UW23260

PATIENT
  Age: 595 Month
  Sex: Female
  Weight: 64 kg

DRUGS (22)
  1. SEROQUEL [Suspect]
     Indication: SCHIZOPHRENIA
     Dosage: 100 MG - 300 MG
     Route: 048
     Dates: start: 20030514
  2. SEROQUEL [Suspect]
     Indication: AGITATION
     Dosage: 100 MG - 300 MG
     Route: 048
     Dates: start: 20030514
  3. SEROQUEL [Suspect]
     Indication: AFFECTIVE DISORDER
     Dosage: 100 MG - 300 MG
     Route: 048
     Dates: start: 20030514
  4. SEROQUEL [Suspect]
     Route: 048
  5. SEROQUEL [Suspect]
     Route: 048
  6. SEROQUEL [Suspect]
     Route: 048
  7. AMPATRAMPHINE [Concomitant]
  8. ACTOS [Concomitant]
     Indication: DIABETES MELLITUS
     Dosage: 15 MG - 30 MG
     Dates: start: 20070323
  9. ATENOLOL [Concomitant]
     Indication: HYPERTENSION
     Dosage: 50 MG -100 MG
     Route: 048
     Dates: start: 20050810
  10. CLONIDINE HCL [Concomitant]
     Indication: HYPERTENSION
     Dosage: 0.2 MG - 6 MG
     Route: 048
     Dates: start: 20000902
  11. AMITRIPTYLINE HCL [Concomitant]
     Indication: PAIN
     Dates: start: 20070323
  12. AMITRIPTYLINE HCL [Concomitant]
     Indication: AFFECTIVE DISORDER
     Dates: start: 20070323
  13. GABAPENTIN [Concomitant]
     Dates: start: 20070323
  14. ASPIRIN [Concomitant]
     Indication: CARDIOVASCULAR EVENT PROPHYLAXIS
     Dates: start: 20070323
  15. ASPIRIN [Concomitant]
     Dates: start: 20070323
  16. LIPITOR [Concomitant]
     Indication: BLOOD CHOLESTEROL INCREASED
     Dates: start: 20070323
  17. LIPITOR [Concomitant]
     Indication: DYSLIPIDAEMIA
     Dates: start: 20070323
  18. LISINOPRIL [Concomitant]
     Dates: start: 20070323
  19. LEXAPRO [Concomitant]
     Dates: start: 20030514
  20. CELEXA [Concomitant]
     Dates: start: 20030514
  21. NEURONTIN [Concomitant]
     Indication: NEURALGIA
     Route: 048
     Dates: start: 20070112
  22. ALDOMET [Concomitant]
     Indication: HYPERTENSION

REACTIONS (7)
  - DIABETES MELLITUS [None]
  - DIABETES MELLITUS INADEQUATE CONTROL [None]
  - DIABETIC NEUROPATHY [None]
  - PAIN IN EXTREMITY [None]
  - PREGNANCY [None]
  - TYPE 2 DIABETES MELLITUS [None]
  - VASCULAR OPERATION [None]
